FAERS Safety Report 20884926 (Version 1)
Quarter: 2022Q2

REPORT INFORMATION
  Report Type: Spontaneous
  Country: US (occurrence: US)
  Receive Date: 20220527
  Receipt Date: 20220527
  Transmission Date: 20220721
  Serious: No
  Sender: FDA-Public Use
  Company Number: US-ESPERION THERAPEUTICS, INC-2022USA00446

PATIENT
  Age: 60 Year
  Sex: Female
  Weight: 56.689 kg

DRUGS (2)
  1. NEXLETOL [Suspect]
     Active Substance: BEMPEDOIC ACID
     Indication: Blood cholesterol increased
     Dosage: 180 MILLIGRAM, QD
     Route: 048
     Dates: start: 2021
  2. THYROID, PORCINE [Concomitant]
     Active Substance: THYROID, PORCINE
     Dosage: UNK
     Route: 065

REACTIONS (1)
  - Dry mouth [Not Recovered/Not Resolved]

NARRATIVE: CASE EVENT DATE: 20210101
